FAERS Safety Report 9554463 (Version 2)
Quarter: 2013Q3

REPORT INFORMATION
  Report Type: Report from Study
  Country: DE (occurrence: DE)
  Receive Date: 20130925
  Receipt Date: 20130925
  Transmission Date: 20140515
  Serious: Yes (Hospitalization)
  Sender: FDA-Public Use
  Company Number: DE-ROCHE-497506

PATIENT
  Age: 71 Year
  Sex: Male
  Weight: 90 kg

DRUGS (4)
  1. INTERFERON ALFA-2A [Suspect]
     Indication: MALIGNANT MELANOMA
     Dosage: DOSAGE FORM REPORTED AS SYRINGE. FREQUENCY REPORTED AS 3X, 3 WEEKS.
     Route: 058
  2. RAMIPRIL [Concomitant]
     Route: 065
  3. ACETYLSALICYLIC ACID [Concomitant]
     Route: 065
  4. BISOPROLOL [Concomitant]
     Route: 065

REACTIONS (3)
  - Chest pain [Recovered/Resolved]
  - Urinary retention [Recovered/Resolved]
  - Prostate cancer [Recovered/Resolved]
